FAERS Safety Report 10169423 (Version 1)
Quarter: 2014Q2

REPORT INFORMATION
  Report Type: Spontaneous
  Country: US (occurrence: US)
  Receive Date: 20140513
  Receipt Date: 20140513
  Transmission Date: 20141212
  Serious: No
  Sender: FDA-Public Use
  Company Number: US-PFIZER INC-2014129821

PATIENT
  Age: 77 Year
  Sex: Male

DRUGS (5)
  1. SUTENT [Suspect]
     Dosage: 25 MG, DAILY
     Route: 048
     Dates: start: 20121031
  2. SIMVASTATIN [Concomitant]
     Dosage: UNK
  3. LEVOTHYROXINE [Concomitant]
     Dosage: UNK
  4. ASPIRIN [Concomitant]
     Dosage: UNK
  5. DOCUSATE [Concomitant]
     Dosage: UNK

REACTIONS (2)
  - Diarrhoea [Unknown]
  - Dysgeusia [Unknown]
